FAERS Safety Report 6199184-7 (Version None)
Quarter: 2009Q2

REPORT INFORMATION
  Report Type: 
  Country: None (occurrence: None)
  Receive Date: 20090522
  Receipt Date: 20090429
  Transmission Date: 20091009
  Serious: No
  Sender: FDA-Public Use
  Company Number: A0777900A

PATIENT
  Age: 45 Year
  Sex: Female
  Weight: 86.4 kg

DRUGS (2)
  1. VERAMYST [Suspect]
     Route: 045
     Dates: start: 20090301
  2. CLARITIN [Concomitant]

REACTIONS (1)
  - DYSPHONIA [None]
